FAERS Safety Report 10417999 (Version 1)
Quarter: 2014Q3

REPORT INFORMATION
  Report Type: Spontaneous
  Country: US (occurrence: None)
  Receive Date: 20140828
  Receipt Date: 20140828
  Transmission Date: 20150326
  Serious: Yes (Hospitalization)
  Sender: FDA-Public Use
  Company Number: None

PATIENT
  Age: 67 Year
  Sex: Male
  Weight: 104.3 kg

DRUGS (1)
  1. IOPROMIDE [Suspect]
     Active Substance: IOPROMIDE
     Indication: ANGIOGRAM
     Dosage: 8880 MG ONCE IV
     Route: 042
     Dates: start: 20140701, end: 20140701

REACTIONS (2)
  - Rash erythematous [None]
  - Erythema [None]

NARRATIVE: CASE EVENT DATE: 20140701
